FAERS Safety Report 7345285-7 (Version None)
Quarter: 2011Q1

REPORT INFORMATION
  Report Type: 
  Country: None (occurrence: None)
  Receive Date: 20110310
  Receipt Date: 20110308
  Transmission Date: 20110831
  Serious: Yes (Death)
  Sender: FDA-Public Use
  Company Number: PE-PFIZER INC-2011044295

PATIENT
  Age: 81 Year
  Sex: Male

DRUGS (2)
  1. CAPTOPRIL [Concomitant]
     Dosage: UNK
     Route: 048
  2. XALATAN [Suspect]
     Indication: GLAUCOMA
     Dosage: 0.031 MG, 1X/DAY
     Route: 047
     Dates: start: 20070708

REACTIONS (1)
  - CARDIAC ARREST [None]
